FAERS Safety Report 4815141-4 (Version None)
Quarter: 2005Q4

REPORT INFORMATION
  Report Type: 
  Country: None (occurrence: None)
  Receive Date: 20051026
  Receipt Date: 20051018
  Transmission Date: 20060501
  Serious: Yes (Hospitalization)
  Sender: FDA-Public Use
  Company Number: ST-2005-008660

PATIENT
  Age: 76 Year
  Sex: Male

DRUGS (6)
  1. OLMETEC [Suspect]
     Indication: HYPERTENSION
     Dosage: 20 MG QD PO
     Route: 048
     Dates: start: 20050804, end: 20051001
  2. CASODEX [Suspect]
     Indication: PROSTATE CANCER
     Dosage: 80 MG QD PO
     Route: 048
     Dates: start: 20050401, end: 20050918
  3. ACTOS [Concomitant]
  4. FASTIC [Concomitant]
  5. EPL CAP [Concomitant]
  6. BASEN [Concomitant]

REACTIONS (2)
  - HEPATIC ENZYME INCREASED [None]
  - HEPATIC FUNCTION ABNORMAL [None]
